FAERS Safety Report 15516355 (Version 1)
Quarter: 2018Q4

REPORT INFORMATION
  Report Type: Spontaneous
  Country: US (occurrence: US)
  Receive Date: 20181011
  Receipt Date: 20181011
  Transmission Date: 20190205
  Serious: Yes (Hospitalization)
  Sender: FDA-Public Use
  Company Number: None

PATIENT
  Age: 78 Year
  Sex: Male
  Weight: 90.72 kg

DRUGS (1)
  1. AVELUMAB [Suspect]
     Active Substance: AVELUMAB
     Indication: GLIOBLASTOMA
     Dates: start: 20180620, end: 20180620

REACTIONS (3)
  - Chills [None]
  - Fluid overload [None]
  - Hypoxia [None]

NARRATIVE: CASE EVENT DATE: 20180620
